FAERS Safety Report 5405157-1 (Version None)
Quarter: 2007Q3

REPORT INFORMATION
  Report Type: 
  Country: None (occurrence: None)
  Receive Date: 20070803
  Receipt Date: 20070726
  Transmission Date: 20080115
  Serious: Yes (Hospitalization)
  Sender: FDA-Public Use
  Company Number: FR-ASTRAZENECA-2007CG01122

PATIENT
  Age: 82 Year
  Sex: Female

DRUGS (9)
  1. OMEPRAZOLE [Suspect]
     Dates: end: 20070705
  2. NEBILOX [Suspect]
     Route: 048
     Dates: end: 20070705
  3. SEROPRAM [Suspect]
     Route: 048
     Dates: end: 20070705
  4. ALDACTONE [Concomitant]
     Route: 048
  5. LASIX [Concomitant]
     Route: 048
  6. ZOLPIDEM TARTRATE [Concomitant]
     Route: 048
  7. SERESTA [Concomitant]
  8. DI-ANTALVIC [Concomitant]
  9. CETIRIZINE HCL [Concomitant]

REACTIONS (4)
  - AGITATION [None]
  - DELIRIUM [None]
  - HALLUCINATION, VISUAL [None]
  - PERSECUTORY DELUSION [None]
